FAERS Safety Report 4361741-8 (Version None)
Quarter: 2004Q2

REPORT INFORMATION
  Report Type: 
  Country: None (occurrence: None)
  Receive Date: 20040521
  Receipt Date: 20040304
  Transmission Date: 20050107
  Serious: No
  Sender: FDA-Public Use
  Company Number: US-GLAXOSMITHKLINE-A0501211A

PATIENT
  Age: 56 Year
  Sex: Female
  Weight: 180 kg

DRUGS (2)
  1. WELLBUTRIN XL [Suspect]
     Indication: DEPRESSION
     Dosage: 300MG IN THE MORNING
     Route: 048
     Dates: start: 20031203
  2. LEXAPRO [Suspect]
     Indication: DRUG USE FOR UNKNOWN INDICATION
     Dosage: 10MG IN THE MORNING
     Route: 048
     Dates: start: 20020902

REACTIONS (2)
  - LYMPHADENOPATHY [None]
  - PAIN [None]
